FAERS Safety Report 14826503 (Version 1)
Quarter: 2018Q2

REPORT INFORMATION
  Report Type: Spontaneous
  Country: IN (occurrence: IN)
  Receive Date: 20180430
  Receipt Date: 20180430
  Transmission Date: 20180711
  Serious: Yes (Hospitalization, Other)
  Sender: FDA-Public Use
  Company Number: PHHY2018IN071034

PATIENT
  Age: 77 Year
  Sex: Female

DRUGS (9)
  1. NORMAL SALINE [Concomitant]
     Active Substance: SODIUM CHLORIDE
     Indication: PRODUCT USED FOR UNKNOWN INDICATION
     Dosage: 100 ML, QH
     Route: 042
  2. THIAMINE. [Concomitant]
     Active Substance: THIAMINE
     Indication: PRODUCT USED FOR UNKNOWN INDICATION
     Route: 065
  3. ASPIRIN. [Concomitant]
     Active Substance: ASPIRIN
     Indication: PRODUCT USED FOR UNKNOWN INDICATION
     Route: 065
  4. ONDANSETRON HYDROCHLORIDE. [Concomitant]
     Active Substance: ONDANSETRON HYDROCHLORIDE
     Indication: PRODUCT USED FOR UNKNOWN INDICATION
     Dosage: 8 MG, UNK
     Route: 042
  5. PANTOPRAZOLE [Concomitant]
     Active Substance: PANTOPRAZOLE
     Indication: PRODUCT USED FOR UNKNOWN INDICATION
     Route: 042
  6. LETROZOLE. [Suspect]
     Active Substance: LETROZOLE
     Dosage: UNK
     Route: 065
     Dates: start: 20170927, end: 20171016
  7. LETROZOLE. [Suspect]
     Active Substance: LETROZOLE
     Indication: BREAST CANCER METASTATIC
     Dosage: 2.5 MG, QD
     Route: 048
     Dates: start: 20170805, end: 20170924
  8. METOCHLOPRAMIDE [Concomitant]
     Active Substance: METOCLOPRAMIDE HYDROCHLORIDE
     Indication: PRODUCT USED FOR UNKNOWN INDICATION
     Route: 065
  9. NORMAL SALINE [Concomitant]
     Active Substance: SODIUM CHLORIDE
     Dosage: 80 ML, QH
     Route: 042

REACTIONS (27)
  - Decreased appetite [Unknown]
  - Muscular weakness [Unknown]
  - Diarrhoea [Recovering/Resolving]
  - Malnutrition [Unknown]
  - Blood creatinine increased [Unknown]
  - Eructation [Unknown]
  - Pain [Unknown]
  - Aspartate aminotransferase increased [Unknown]
  - Wernicke^s encephalopathy [Recovered/Resolved]
  - Pollakiuria [Not Recovered/Not Resolved]
  - Blood pressure systolic increased [Unknown]
  - Pyrexia [Recovering/Resolving]
  - Nausea [Unknown]
  - Hyponatraemia [Unknown]
  - Reflexes abnormal [Unknown]
  - Alanine aminotransferase increased [Unknown]
  - Fatigue [Not Recovered/Not Resolved]
  - Loss of consciousness [Unknown]
  - Gait disturbance [Unknown]
  - Dyspnoea [Unknown]
  - Cough [Unknown]
  - Blood alkaline phosphatase increased [Unknown]
  - Vomiting [Unknown]
  - Dysuria [Unknown]
  - Cholelithiasis [Unknown]
  - Hypothyroidism [Unknown]
  - Body temperature increased [Unknown]

NARRATIVE: CASE EVENT DATE: 20170921
